FAERS Safety Report 26107008 (Version 1)
Quarter: 2025Q4

REPORT INFORMATION
  Report Type: Spontaneous
  Country: EU (occurrence: EU)
  Receive Date: 20251201
  Receipt Date: 20251201
  Transmission Date: 20260117
  Serious: Yes (Death, Other)
  Sender: AUROBINDO
  Company Number: EU-LRB-01096378

PATIENT
  Age: 69 Year
  Sex: Female

DRUGS (9)
  1. TOPIRAMATE [Suspect]
     Active Substance: TOPIRAMATE
     Indication: Nightmare
     Dosage: 37.5 MILLIGRAM, ONCE A DAY (1 KEER PER DAG 1,5 TABLET)
     Dates: start: 20211029
  2. DAPAGLIFLOZINE TABLET  5MG / FORXIGA TABLET FILMOMHULD  5MG [Concomitant]
     Indication: Product used for unknown indication
     Dosage: 5 MILLIGRAM
  3. SEMAGLUTIDE TABLET 14MG / RYBELSUS TABLET 14MG [Concomitant]
     Indication: Product used for unknown indication
     Dosage: 14 MILLIGRAM
  4. PROPRANOLOL CREME 10MG/G / Brand name not specified [Concomitant]
     Indication: Product used for unknown indication
     Dosage: 10 MILLIGRAM/GRAM
  5. OXAZEPAM [Concomitant]
     Active Substance: OXAZEPAM
     Indication: Product used for unknown indication
     Dosage: 10 MILLIGRAM
  6. QUETIAPINE TABLET FO  25MG / Brand name not specified [Concomitant]
     Indication: Product used for unknown indication
     Dosage: 25 MILLIGRAM
  7. SERTRALINE TABLET 100MG / Brand name not specified [Concomitant]
     Indication: Product used for unknown indication
     Dosage: 100 MILLIGRAM
  8. OMEPRAZOLE [Concomitant]
     Active Substance: OMEPRAZOLE
     Indication: Product used for unknown indication
     Dosage: 20 MILLIGRAM
  9. COLECALCIFEROL CAPSULE    800IE / Brand name not specified [Concomitant]
     Indication: Product used for unknown indication
     Dosage: UNK

REACTIONS (2)
  - Suicidal ideation [Fatal]
  - Completed suicide [Fatal]

NARRATIVE: CASE EVENT DATE: 20251103
